FAERS Safety Report 4895543-0 (Version None)
Quarter: 2006Q1

REPORT INFORMATION
  Report Type: 
  Country: None (occurrence: None)
  Receive Date: 20060125
  Receipt Date: 20060112
  Transmission Date: 20060701
  Serious: Yes (Hospitalization, Other)
  Sender: FDA-Public Use
  Company Number: 2006008581

PATIENT
  Age: 17 Year
  Sex: Female
  Weight: 66.2252 kg

DRUGS (5)
  1. DEPO-PROVERA [Suspect]
     Indication: CONTRACEPTION
     Dosage: 150 MG (150 MG, EVERY 3 MONTHS), INTRAMUSCULAR
     Route: 030
     Dates: start: 20060110, end: 20060110
  2. TRAZODONE HCL [Concomitant]
  3. ADDERALL 10 [Concomitant]
  4. INDERAL [Concomitant]
  5. ZOLOFT [Concomitant]

REACTIONS (3)
  - ABDOMINAL PAIN [None]
  - ABNORMAL BEHAVIOUR [None]
  - PREGNANCY WITH INJECTABLE CONTRACEPTIVE [None]
